FAERS Safety Report 4920730-2 (Version None)
Quarter: 2006Q1

REPORT INFORMATION
  Report Type: 
  Country: None (occurrence: None)
  Receive Date: 20060223
  Receipt Date: 20050630
  Transmission Date: 20060701
  Serious: Yes (Hospitalization)
  Sender: FDA-Public Use
  Company Number: DE-BOEHRINGER INGELHEIM PHARMACEUTICALS, INC.-2005-DE-02523DE

PATIENT
  Sex: Male
  Weight: 86.2 kg

DRUGS (4)
  1. TIPRANAVIR + RITONAVIR CO-ADMIN [Suspect]
     Indication: HIV INFECTION
     Dosage: TIPRANAVIR 1000 MG/RTV 400 MG
     Route: 048
     Dates: start: 20040329
  2. EPIVIR [Concomitant]
     Indication: HIV INFECTION
     Route: 048
     Dates: start: 20040329
  3. VIREAD [Concomitant]
     Indication: HIV INFECTION
     Route: 048
     Dates: start: 20040330
  4. ASPIRIN [Concomitant]
     Indication: THROMBOSIS PROPHYLAXIS
     Route: 048

REACTIONS (5)
  - DIVERTICULITIS [None]
  - DIVERTICULUM [None]
  - EYE DISORDER [None]
  - GASTROINTESTINAL HAEMORRHAGE [None]
  - THROMBOSIS [None]
